FAERS Safety Report 8730113 (Version 1)
Quarter: 2012Q4

REPORT INFORMATION
  Report Type: 
  Country: US (occurrence: US)
  Receive Date: 20120912
  Receipt Date: 20120912
  Transmission Date: 20130627
  Serious: Yes (Other)
  Sender: FDA-Public Use
  Company Number: US-ROCHE-1101427

PATIENT
  Age: 45 Year
  Sex: Female

DRUGS (3)
  1. ACTIVASE [Suspect]
     Indication: ACUTE MYOCARDIAL INFARCTION
     Route: 065
  2. HEPARIN [Concomitant]
     Route: 042
  3. NITROGLYCERIN [Concomitant]
     Route: 041

REACTIONS (1)
  - Postinfarction angina [Unknown]
